FAERS Safety Report 8784714 (Version 1)
Quarter: 2012Q4

REPORT INFORMATION
  Report Type: 
  Country: US (occurrence: US)
  Receive Date: 20120914
  Receipt Date: 20120914
  Transmission Date: 20130627
  Serious: No
  Sender: FDA-Public Use
  Company Number: US-B.I. PHARMACEUTICALS,INC./RIDGEFIELD-2012-BP-22245BP

PATIENT
  Age: 0 Year
  Sex: Female

DRUGS (1)
  1. ZANTAC 150 (RANITIDINE HYDROCHLORIDE) [Suspect]
     Route: 048
     Dates: start: 20120907, end: 20120907

REACTIONS (1)
  - Accidental exposure to product by child [Recovered/Resolved]
